FAERS Safety Report 18992936 (Version 7)
Quarter: 2021Q2

REPORT INFORMATION
  Report Type: Report from Study
  Country: LB (occurrence: LB)
  Receive Date: 20210310
  Receipt Date: 20210604
  Transmission Date: 20210717
  Serious: Yes (Disabling)
  Sender: FDA-Public Use
  Company Number: LB-CELGENEUS-LBN-20201208857

PATIENT
  Age: 23 Year
  Sex: Male
  Weight: 51 kg

DRUGS (20)
  1. DESFERAL [Suspect]
     Active Substance: DEFEROXAMINE MESYLATE
     Route: 058
     Dates: start: 20210427
  2. LUSPATERCEPT. [Suspect]
     Active Substance: LUSPATERCEPT
     Dosage: 1.25 MILLIGRAM/KILOGRAM
     Route: 058
     Dates: start: 20170502, end: 20170502
  3. LUSPATERCEPT. [Suspect]
     Active Substance: LUSPATERCEPT
     Route: 058
     Dates: start: 20170707, end: 20170912
  4. LUSPATERCEPT. [Suspect]
     Active Substance: LUSPATERCEPT
     Route: 058
     Dates: start: 20180320, end: 20180725
  5. JADENU [Concomitant]
     Active Substance: DEFERASIROX
     Dosage: 720 MILLIGRAM
     Route: 065
     Dates: start: 20201230
  6. LUSPATERCEPT. [Suspect]
     Active Substance: LUSPATERCEPT
     Dosage: 1.25 MILLIGRAM/KILOGRAM
     Route: 058
     Dates: start: 20201013, end: 20201103
  7. LUSPATERCEPT. [Suspect]
     Active Substance: LUSPATERCEPT
     Dosage: 1.25 MILLIGRAM/KILOGRAM
     Route: 058
     Dates: start: 2020, end: 20210303
  8. LUSPATERCEPT. [Suspect]
     Active Substance: LUSPATERCEPT
     Route: 058
     Dates: start: 20180817, end: 20181130
  9. LUSPATERCEPT. [Suspect]
     Active Substance: LUSPATERCEPT
     Dosage: 1.25 MILLIGRAM/KILOGRAM
     Route: 058
     Dates: start: 20201104, end: 20201104
  10. DESFERAL [Suspect]
     Active Substance: DEFEROXAMINE MESYLATE
     Indication: IRON OVERLOAD
     Dosage: 1250 MILLIGRAM
     Route: 058
     Dates: start: 20200504, end: 20201126
  11. LUSPATERCEPT. [Suspect]
     Active Substance: LUSPATERCEPT
     Route: 058
     Dates: start: 20170523, end: 20170616
  12. LUSPATERCEPT. [Suspect]
     Active Substance: LUSPATERCEPT
     Dosage: 1.25 MILLIGRAM/KILOGRAM
     Route: 058
     Dates: start: 20200310
  13. DESFERAL [Suspect]
     Active Substance: DEFEROXAMINE MESYLATE
     Indication: PRODUCT USED FOR UNKNOWN INDICATION
     Dosage: 1250 MILLIGRAM
     Route: 058
     Dates: start: 20180227, end: 20200420
  14. JADENU [Concomitant]
     Active Substance: DEFERASIROX
     Indication: CHELATION THERAPY
     Route: 065
     Dates: start: 20201001
  15. LUSPATERCEPT. [Suspect]
     Active Substance: LUSPATERCEPT
     Indication: THALASSAEMIA BETA
     Dosage: 1 MILLIGRAM/KILOGRAM
     Route: 058
     Dates: start: 20170307, end: 20170411
  16. LUSPATERCEPT. [Suspect]
     Active Substance: LUSPATERCEPT
     Route: 058
     Dates: start: 20171005, end: 20180226
  17. DESFERAL [Suspect]
     Active Substance: DEFEROXAMINE MESYLATE
     Route: 041
     Dates: start: 20201014, end: 20201014
  18. LUSPATERCEPT. [Suspect]
     Active Substance: LUSPATERCEPT
     Route: 058
     Dates: start: 20190408, end: 20191129
  19. LUSPATERCEPT. [Suspect]
     Active Substance: LUSPATERCEPT
     Route: 058
     Dates: start: 20200107, end: 20200217
  20. LUSPATERCEPT. [Suspect]
     Active Substance: LUSPATERCEPT
     Route: 058
     Dates: start: 20181219, end: 20190318

REACTIONS (1)
  - Myelopathy [Not Recovered/Not Resolved]

NARRATIVE: CASE EVENT DATE: 20201015
